FAERS Safety Report 10228126 (Version 1)
Quarter: 2014Q2

REPORT INFORMATION
  Report Type: Spontaneous
  Country: US (occurrence: US)
  Receive Date: 20140610
  Receipt Date: 20140610
  Transmission Date: 20141212
  Serious: Yes (Hospitalization, Other)
  Sender: FDA-Public Use
  Company Number: US-PFIZER INC-2014156977

PATIENT
  Age: 40 Year
  Sex: Female

DRUGS (8)
  1. LYRICA [Suspect]
     Indication: FIBROMYALGIA
     Dosage: 75 MG, 3X/DAY
     Route: 048
  2. SIMVASTATIN [Concomitant]
     Dosage: 80 MG, UNK
  3. METHADONE [Concomitant]
     Dosage: 10 MG, 3X/DAY
  4. LORATADINE [Concomitant]
     Indication: HYPERSENSITIVITY
     Dosage: 10 MG, UNK
  5. PHENERGAN [Concomitant]
     Dosage: 25 MG, AS NEEDED
  6. TIZANIDINE [Concomitant]
     Indication: MUSCLE RELAXANT THERAPY
     Dosage: 4 MG, AS NEEDED
  7. PERCOCET [Concomitant]
     Indication: PAIN
     Dosage: 325/5 MG, AS NEEDED
  8. XANAX [Concomitant]
     Indication: ANXIETY
     Dosage: 0.25 MG, 2X/DAY

REACTIONS (6)
  - Appendix disorder [Unknown]
  - Haemorrhage [Unknown]
  - Infection [Unknown]
  - Gallbladder disorder [Unknown]
  - Hepatic enzyme increased [Unknown]
  - Malaise [Unknown]
